FAERS Safety Report 4980179-3 (Version None)
Quarter: 2006Q2

REPORT INFORMATION
  Report Type: 
  Country: None (occurrence: None)
  Receive Date: 20060424
  Receipt Date: 20060413
  Transmission Date: 20061013
  Serious: Yes (Hospitalization)
  Sender: FDA-Public Use
  Company Number: SE-BRISTOL-MYERS SQUIBB COMPANY-13345095

PATIENT
  Age: 80 Year
  Sex: Female

DRUGS (8)
  1. COAPROVEL TABS 300MG/12.5MG [Suspect]
     Indication: HYPERTENSION
     Dates: end: 20051215
  2. CITALOPRAM [Suspect]
     Indication: DEPRESSION
     Dates: end: 20051215
  3. DETRUSITOL [Concomitant]
  4. ARTROX [Concomitant]
  5. DAONIL [Concomitant]
  6. TROMBYL [Concomitant]
  7. CALCICHEW D3 [Concomitant]
  8. VITAMIN B COMPLEX CAP [Concomitant]

REACTIONS (3)
  - HYPOKALAEMIA [None]
  - INAPPROPRIATE ANTIDIURETIC HORMONE SECRETION [None]
  - LOSS OF CONSCIOUSNESS [None]
